FAERS Safety Report 25468323 (Version 1)
Quarter: 2025Q2

REPORT INFORMATION
  Report Type: Spontaneous
  Country: US (occurrence: None)
  Receive Date: 20250623
  Receipt Date: 20250623
  Transmission Date: 20250716
  Serious: Yes (Hospitalization, Other)
  Sender: INCYTE
  Company Number: US-INCYTE CORPORATION-2025IN006650

PATIENT
  Age: 17 Year
  Weight: 46.5 kg

DRUGS (1)
  1. PEMAZYRE [Suspect]
     Active Substance: PEMIGATINIB
     Indication: Adenocarcinoma of colon
     Dosage: 13.5 MILLIGRAM, DAILY FOR 14 DAYS, 7 DAYS OFF
     Route: 065

REACTIONS (9)
  - Electrolyte imbalance [Unknown]
  - Acute kidney injury [Unknown]
  - Dehydration [Unknown]
  - Vomiting [Unknown]
  - Blood alkaline phosphatase increased [Unknown]
  - Aspartate aminotransferase increased [Unknown]
  - Blood bilirubin increased [Unknown]
  - Off label use [Unknown]
  - Nausea [Unknown]
